FAERS Safety Report 9680326 (Version 1)
Quarter: 2013Q4

REPORT INFORMATION
  Report Type: Spontaneous
  Country: FR (occurrence: FR)
  Receive Date: 20131111
  Receipt Date: 20131111
  Transmission Date: 20140711
  Serious: Yes (Hospitalization)
  Sender: FDA-Public Use
  Company Number: FR-JNJFOC-20131104092

PATIENT
  Age: 66 Year
  Sex: Female

DRUGS (3)
  1. IXPRIM [Suspect]
     Indication: SCIATICA
     Route: 048
     Dates: start: 20130927, end: 20131003
  2. NABUCOX [Suspect]
     Indication: SCIATICA
     Route: 048
     Dates: start: 20130927, end: 20131003
  3. CEFPODOXIME PROXETIL [Suspect]
     Indication: SINUSITIS
     Route: 048
     Dates: start: 20130914, end: 20130921

REACTIONS (1)
  - Drug reaction with eosinophilia and systemic symptoms [Recovering/Resolving]
